FAERS Safety Report 25312833 (Version 2)
Quarter: 2025Q2

REPORT INFORMATION
  Report Type: Spontaneous
  Country: UZ (occurrence: UZ)
  Receive Date: 20250514
  Receipt Date: 20250521
  Transmission Date: 20250717
  Serious: Yes (Hospitalization)
  Sender: PFIZER
  Company Number: UZ-PFIZER INC-PV202500056665

PATIENT
  Age: 14 Year
  Sex: Male

DRUGS (2)
  1. METHYLPREDNISOLONE SODIUM SUCCINATE [Suspect]
     Active Substance: METHYLPREDNISOLONE SODIUM SUCCINATE
     Indication: Transplant rejection
     Dosage: FOLLOWED BY A GRADUAL TAPERING OF THE DOSE
     Route: 042
  2. LAPINE T-LYMPHOCYTE IMMUNE GLOBULIN [Suspect]
     Active Substance: LAPINE T-LYMPHOCYTE IMMUNE GLOBULIN
     Indication: Transplant rejection
     Dosage: 1 MG/KG, DAILY

REACTIONS (2)
  - Drug resistance [Unknown]
  - Drug ineffective [Unknown]
